FAERS Safety Report 9957819 (Version 1)
Quarter: 2014Q1

REPORT INFORMATION
  Report Type: Spontaneous
  Country: US (occurrence: US)
  Receive Date: 20140304
  Receipt Date: 20140304
  Transmission Date: 20141002
  Serious: Yes (Other)
  Sender: FDA-Public Use
  Company Number: US-ABBVIE-13P-163-1092036-00

PATIENT
  Sex: Female

DRUGS (4)
  1. HUMIRA [Suspect]
     Indication: ANKYLOSING SPONDYLITIS
     Dates: start: 2006, end: 201301
  2. CRESTOR [Concomitant]
     Indication: BLOOD CHOLESTEROL INCREASED
  3. PRILOSEC [Concomitant]
     Indication: GASTROOESOPHAGEAL REFLUX DISEASE
  4. AMBIEN [Concomitant]
     Indication: INSOMNIA

REACTIONS (7)
  - Malignant melanoma [Not Recovered/Not Resolved]
  - Herpes zoster [Recovered/Resolved]
  - Cystitis [Recovered/Resolved]
  - Injection site pain [Not Recovered/Not Resolved]
  - Listless [Recovered/Resolved]
  - Fatigue [Recovered/Resolved]
  - Cystitis [Recovered/Resolved]
